FAERS Safety Report 10860743 (Version 1)
Quarter: 2015Q1

REPORT INFORMATION
  Report Type: Spontaneous
  Country: FR (occurrence: FR)
  Receive Date: 20150224
  Receipt Date: 20150224
  Transmission Date: 20150721
  Serious: Yes (Hospitalization)
  Sender: FDA-Public Use
  Company Number: PHHY2015FR020426

PATIENT
  Age: 87 Year
  Sex: Female

DRUGS (6)
  1. CORTANCYL [Suspect]
     Active Substance: PREDNISONE
     Indication: PLASMA CELL MYELOMA
     Dosage: 20 MG, PER DAY FOR 4 DAYS OF EACH CYCLE
     Route: 048
     Dates: start: 20140405
  2. PAMIDRONATE [Suspect]
     Active Substance: PAMIDRONATE DISODIUM
     Indication: PLASMA CELL MYELOMA
     Dosage: 90 MG BY CYCLE
     Route: 042
  3. ALKERAN [Concomitant]
     Active Substance: MELPHALAN
     Indication: PLASMA CELL MYELOMA
     Dosage: 10 MG, FOR 4 DAYS
     Route: 065
  4. ZOMETA [Suspect]
     Active Substance: ZOLEDRONIC ACID
     Indication: PLASMA CELL MYELOMA
     Dosage: 4 MG BY CYCLE
     Route: 042
  5. PREDNISONE. [Concomitant]
     Active Substance: PREDNISONE
     Indication: PLASMA CELL MYELOMA
     Dosage: 20 MG, FOR 4 DAYS
     Route: 065
  6. THALIDOMIDE [Concomitant]
     Active Substance: THALIDOMIDE
     Indication: PLASMA CELL MYELOMA
     Dosage: 50 MG, PER DAY
     Route: 065

REACTIONS (1)
  - Osteonecrosis of jaw [Not Recovered/Not Resolved]

NARRATIVE: CASE EVENT DATE: 20140517
